FAERS Safety Report 26060090 (Version 1)
Quarter: 2025Q4

REPORT INFORMATION
  Report Type: Spontaneous
  Country: US (occurrence: None)
  Receive Date: 20251118
  Receipt Date: 20251118
  Transmission Date: 20260118
  Serious: Yes (Other)
  Sender: FDA-CTU
  Company Number: None

PATIENT
  Age: 31 Year
  Sex: Female
  Weight: 111.15 kg

DRUGS (14)
  1. ZEPBOUND [Suspect]
     Active Substance: TIRZEPATIDE
     Indication: Weight decreased
     Dosage: OTHER QUANTITY : 1 INJECTION(S);?OTHER FREQUENCY : ONCE WEEKLY;?OTHER ROUTE : SUBCUTANEOUS;?
     Dates: start: 20250501
  2. DEVICE [Concomitant]
     Active Substance: DEVICE
  3. Clindamycin topical solution for HS [Concomitant]
  4. Triamcinolone topic ointment for HS [Concomitant]
  5. Zepbound 10 mg/0.5 mL [Concomitant]
  6. Famotidine 10 mg PO QHS [Concomitant]
  7. Cetirizine 10 mg PO QHS [Concomitant]
  8. Women^s Multivitamin PO QHS [Concomitant]
  9. Biotin PO QHS [Concomitant]
  10. Vitamin B12 PO QHS [Concomitant]
  11. Vitamin D3 PO QHS [Concomitant]
  12. Excedrin Migraine (Acetaminophen [Concomitant]
  13. Caffeine, Aspirin) PRN [Concomitant]
  14. Tums PRN [Concomitant]

REACTIONS (5)
  - Facial pain [None]
  - Muscle twitching [None]
  - Skin burning sensation [None]
  - Photophobia [None]
  - Herpes zoster [None]

NARRATIVE: CASE EVENT DATE: 20250926
